FAERS Safety Report 12587636 (Version 3)
Quarter: 2020Q1

REPORT INFORMATION
  Report Type: Spontaneous
  Country: BR (occurrence: BR)
  Receive Date: 20160725
  Receipt Date: 20200116
  Transmission Date: 20200409
  Serious: Yes (Other)
  Sender: FDA-Public Use
  Company Number: BR-JNJFOC-20160717919

PATIENT
  Age: 35 Year
  Sex: Female
  Weight: 57.2 kg

DRUGS (26)
  1. ABACAVIR. [Concomitant]
     Active Substance: ABACAVIR
     Indication: ANTIVIRAL TREATMENT
     Route: 065
     Dates: start: 20160916
  2. LAMIVUDINE/ZIDOVUDINE [Suspect]
     Active Substance: LAMIVUDINE\ZIDOVUDINE
     Indication: ANTIRETROVIRAL THERAPY
     Route: 065
     Dates: start: 20160505, end: 2016
  3. ATORVASTATIN [Concomitant]
     Active Substance: ATORVASTATIN
     Indication: DYSLIPIDAEMIA
     Route: 065
     Dates: start: 20160505
  4. RIFABUTIN. [Concomitant]
     Active Substance: RIFABUTIN
     Route: 065
     Dates: start: 20160519
  5. PYRAZINAMIDE. [Concomitant]
     Active Substance: PYRAZINAMIDE
     Indication: LYMPH NODE TUBERCULOSIS
     Route: 065
     Dates: start: 20160330
  6. PYRIDOXINE [Concomitant]
     Active Substance: PYRIDOXINE
     Indication: VITAMIN SUPPLEMENTATION
     Route: 065
     Dates: start: 20160330
  7. RIFAMPICIN [Interacting]
     Active Substance: RIFAMPIN
     Indication: ANTIBIOTIC PROPHYLAXIS
     Route: 065
  8. CRONOBE [Concomitant]
     Active Substance: COBAMAMIDE
     Route: 030
  9. RITONAVIR. [Interacting]
     Active Substance: RITONAVIR
     Indication: HIV INFECTION
     Route: 065
     Dates: start: 20160202
  10. ISONIAZID. [Suspect]
     Active Substance: ISONIAZID
     Indication: LYMPH NODE TUBERCULOSIS
     Route: 065
     Dates: start: 20160330
  11. PREZISTA [Suspect]
     Active Substance: DARUNAVIR ETHANOLATE
     Route: 048
     Dates: end: 20160916
  12. RALTEGRAVIR. [Suspect]
     Active Substance: RALTEGRAVIR
     Indication: HIV INFECTION
     Route: 065
     Dates: start: 20160121
  13. RALTEGRAVIR. [Suspect]
     Active Substance: RALTEGRAVIR
     Route: 065
  14. VITAMIN D3 [Concomitant]
     Active Substance: CHOLECALCIFEROL
     Indication: VITAMIN SUPPLEMENTATION
     Route: 065
  15. FENOFIBRATE. [Concomitant]
     Active Substance: FENOFIBRATE
     Indication: DYSLIPIDAEMIA
     Route: 065
     Dates: start: 20160528
  16. RIFABUTIN. [Concomitant]
     Active Substance: RIFABUTIN
     Indication: LYMPH NODE TUBERCULOSIS
     Route: 065
     Dates: start: 20160330, end: 2016
  17. LEVOFLOXACIN. [Concomitant]
     Active Substance: LEVOFLOXACIN
     Indication: ANTIBIOTIC PROPHYLAXIS
     Route: 065
     Dates: start: 20160330
  18. AMITRIPTYLINE [Concomitant]
     Active Substance: AMITRIPTYLINE
     Indication: PERIPHERAL SENSORIMOTOR NEUROPATHY
     Route: 065
     Dates: start: 20160705, end: 20160719
  19. PREZISTA [Suspect]
     Active Substance: DARUNAVIR ETHANOLATE
     Indication: HIV INFECTION
     Route: 048
     Dates: start: 20160202
  20. RALTEGRAVIR. [Suspect]
     Active Substance: RALTEGRAVIR
     Route: 065
     Dates: start: 20160916
  21. ETHAMBUTOL [Concomitant]
     Active Substance: ETHAMBUTOL HYDROCHLORIDE
     Indication: LYMPH NODE TUBERCULOSIS
     Route: 065
     Dates: start: 20160330
  22. LAMIVUDINE/ZIDOVUDINE [Suspect]
     Active Substance: LAMIVUDINE\ZIDOVUDINE
     Route: 065
     Dates: start: 20160916
  23. PYRIDOXINE [Concomitant]
     Active Substance: PYRIDOXINE
     Indication: NUTRITIONAL SUPPLEMENTATION
     Route: 065
  24. MOXIFLOXACIN. [Concomitant]
     Active Substance: MOXIFLOXACIN
     Indication: ANTIBIOTIC PROPHYLAXIS
     Route: 065
  25. LEVOTHYROXINE. [Concomitant]
     Active Substance: LEVOTHYROXINE
     Indication: HYPOTHYROIDISM
     Route: 065
     Dates: start: 201602
  26. GABAPENTIN. [Concomitant]
     Active Substance: GABAPENTIN
     Indication: PERIPHERAL SENSORIMOTOR NEUROPATHY
     Route: 065
     Dates: start: 20160703, end: 20160719

REACTIONS (6)
  - Drug interaction [Unknown]
  - Lymph node tuberculosis [Unknown]
  - Cytomegalovirus test positive [Unknown]
  - Sensory disturbance [Unknown]
  - Toxicity to various agents [Unknown]
  - Peripheral sensorimotor neuropathy [Recovering/Resolving]
